FAERS Safety Report 10806576 (Version 1)
Quarter: 2015Q1

REPORT INFORMATION
  Report Type: Report from Study
  Country: US (occurrence: US)
  Receive Date: 20150217
  Receipt Date: 20150217
  Transmission Date: 20150721
  Serious: No
  Sender: FDA-Public Use
  Company Number: US-ABBVIE-14K-163-1250186-00

PATIENT
  Age: 60 Year
  Sex: Female

DRUGS (6)
  1. HCTZ [Concomitant]
     Active Substance: HYDROCHLOROTHIAZIDE
     Indication: HYPERTENSION
     Dosage: HALF DAILY
  2. FOLIC ACID. [Concomitant]
     Active Substance: FOLIC ACID
     Indication: PRODUCT USED FOR UNKNOWN INDICATION
  3. HUMIRA [Suspect]
     Active Substance: ADALIMUMAB
     Indication: PSORIASIS
     Dosage: DAY ONE
     Dates: start: 20140312, end: 20140312
  4. HUMIRA [Suspect]
     Active Substance: ADALIMUMAB
     Dates: start: 2014
  5. METHOTREXATE [Concomitant]
     Active Substance: METHOTREXATE
     Indication: PSORIASIS
     Dosage: BID EVERY THURSDAY AND 2 EVERY FRIDAY MORNING
  6. HUMIRA [Suspect]
     Active Substance: ADALIMUMAB
     Dosage: DAY EIGHT
     Dates: start: 20140320, end: 20140320

REACTIONS (11)
  - Ear infection [Recovered/Resolved]
  - Eye discharge [Recovered/Resolved]
  - Eye infection [Recovered/Resolved]
  - Upper respiratory tract infection [Recovered/Resolved]
  - Diarrhoea [Recovering/Resolving]
  - Upper-airway cough syndrome [Recovered/Resolved]
  - White blood cell count abnormal [Unknown]
  - Oropharyngeal pain [Recovered/Resolved]
  - Sinusitis [Recovered/Resolved]
  - Diverticulitis [Recovering/Resolving]
  - Ear pain [Recovered/Resolved]

NARRATIVE: CASE EVENT DATE: 201406
